FAERS Safety Report 18594860 (Version 1)
Quarter: 2020Q4

REPORT INFORMATION
  Report Type: Spontaneous
  Country: US (occurrence: US)
  Receive Date: 20201209
  Receipt Date: 20201209
  Transmission Date: 20210114
  Serious: Yes (Other)
  Sender: FDA-Public Use
  Company Number: US-TEVA-2020-US-1857152

PATIENT
  Sex: Male

DRUGS (10)
  1. BUPRENORPHINE TRANSDERMAL SYSTEM [Suspect]
     Active Substance: BUPRENORPHINE
     Indication: BACK PAIN
     Route: 062
  2. MORPHINE [Suspect]
     Active Substance: MORPHINE
     Indication: BACK PAIN
     Route: 065
  3. MS CONTIN [Suspect]
     Active Substance: MORPHINE SULFATE
     Route: 065
  4. OXYCODONE [Suspect]
     Active Substance: OXYCODONE
     Indication: BACK PAIN
     Dosage: IMMEDIATE RELEASE TABLETS
     Route: 065
  5. RYZOLT [Suspect]
     Active Substance: TRAMADOL HYDROCHLORIDE
     Indication: BACK PAIN
     Route: 065
  6. BUTRANS [Suspect]
     Active Substance: BUPRENORPHINE
     Indication: BACK PAIN
     Route: 065
  7. OXYFAST [Suspect]
     Active Substance: OXYCODONE
     Route: 065
  8. TRAMADOL. [Suspect]
     Active Substance: TRAMADOL
     Indication: BACK PAIN
     Route: 065
  9. OXYCODONE ER [Suspect]
     Active Substance: OXYCODONE
     Indication: BACK PAIN
     Dosage: EXTENDED RELEASE TABLET
     Route: 065
  10. OXYCONTIN [Suspect]
     Active Substance: OXYCODONE HYDROCHLORIDE
     Indication: BACK PAIN
     Route: 065

REACTIONS (7)
  - Post-traumatic stress disorder [Unknown]
  - Back injury [Unknown]
  - Drug dependence [Unknown]
  - Overdose [Unknown]
  - Injury [Unknown]
  - Psychological trauma [Unknown]
  - Withdrawal syndrome [Unknown]
